FAERS Safety Report 15791770 (Version 1)
Quarter: 2019Q1

REPORT INFORMATION
  Report Type: Spontaneous
  Country: CN (occurrence: CN)
  Receive Date: 20190105
  Receipt Date: 20190105
  Transmission Date: 20190417
  Serious: Yes (Other)
  Sender: FDA-Public Use
  Company Number: CN-AMGEN-CHNSP2019001245

PATIENT
  Age: 68 Year
  Sex: Female

DRUGS (1)
  1. GRAN [Suspect]
     Active Substance: FILGRASTIM
     Indication: GRANULOCYTE COUNT DECREASED
     Dosage: 150 UG, QD
     Route: 030
     Dates: start: 20181104, end: 20181104

REACTIONS (4)
  - Palpitations [Recovering/Resolving]
  - Leukocytosis [Recovering/Resolving]
  - Hyperpyrexia [Recovering/Resolving]
  - Chills [Recovering/Resolving]

NARRATIVE: CASE EVENT DATE: 20181104
